FAERS Safety Report 8350789-4 (Version None)
Quarter: 2012Q2

REPORT INFORMATION
  Report Type: 
  Country: None (occurrence: None)
  Receive Date: 20120510
  Receipt Date: 20120507
  Transmission Date: 20120825
  Serious: Yes (Hospitalization)
  Sender: FDA-Public Use
  Company Number: DE-GLAXOSMITHKLINE-B0800504A

PATIENT
  Sex: Female
  Weight: 55 kg

DRUGS (5)
  1. LAPATINIB [Suspect]
     Indication: BREAST CANCER
     Dosage: 500MG PER DAY
     Route: 048
     Dates: start: 20120314
  2. DOXORUBICIN HCL [Suspect]
     Indication: BREAST CANCER
     Dosage: 33MG WEEKLY
     Route: 042
     Dates: start: 20120314
  3. PACLITAXEL [Suspect]
     Indication: BREAST CANCER
     Dosage: 131MG WEEKLY
     Route: 042
     Dates: start: 20120314
  4. CARBOPLATIN [Suspect]
     Indication: BREAST CANCER
     Dosage: 271MG WEEKLY
     Route: 042
     Dates: start: 20120314
  5. HERCEPTIN [Suspect]
     Indication: BREAST CANCER
     Dosage: 359MG EVERY 3 WEEKS
     Route: 042
     Dates: start: 20120314

REACTIONS (1)
  - DIARRHOEA [None]
